FAERS Safety Report 25389026 (Version 3)
Quarter: 2025Q3

REPORT INFORMATION
  Report Type: Report from Study
  Country: US (occurrence: US)
  Receive Date: 20250603
  Receipt Date: 20250911
  Transmission Date: 20251021
  Serious: Yes (Other)
  Sender: ABBVIE
  Company Number: US-ABBVIE-6307823

PATIENT
  Age: 79 Year
  Sex: Male

DRUGS (1)
  1. RINVOQ [Suspect]
     Active Substance: UPADACITINIB
     Indication: Dermatitis atopic
     Route: 048
     Dates: start: 20240509

REACTIONS (4)
  - Cholelithiasis [Recovered/Resolved]
  - Cholecystitis infective [Recovering/Resolving]
  - Fatigue [Recovering/Resolving]
  - Prostatic disorder [Recovered/Resolved]

NARRATIVE: CASE EVENT DATE: 20250508
